FAERS Safety Report 5064823-0 (Version None)
Quarter: 2006Q3

REPORT INFORMATION
  Report Type: 
  Country: None (occurrence: None)
  Receive Date: 20060728
  Receipt Date: 20050708
  Transmission Date: 20061208
  Serious: Yes (Hospitalization)
  Sender: FDA-Public Use
  Company Number: PHBS2005JP09971

PATIENT
  Age: 57 Year
  Sex: Male

DRUGS (3)
  1. PROCHLORPERAZINE MALEATE [Suspect]
     Indication: CANCER PAIN
  2. MORPHINE [Concomitant]
     Indication: CANCER PAIN
     Route: 065
  3. TOFRANIL [Suspect]
     Indication: CANCER PAIN
     Route: 048

REACTIONS (8)
  - BLOOD CREATINE PHOSPHOKINASE INCREASED [None]
  - DEPRESSED LEVEL OF CONSCIOUSNESS [None]
  - MUSCLE RIGIDITY [None]
  - MUSCULAR WEAKNESS [None]
  - NEUROLEPTIC MALIGNANT SYNDROME [None]
  - PYREXIA [None]
  - TACHYCARDIA [None]
  - TREMOR [None]
